FAERS Safety Report 8277571-0 (Version None)
Quarter: 2012Q2

REPORT INFORMATION
  Report Type: 
  Country: None (occurrence: None)
  Receive Date: 20120412
  Receipt Date: 20120405
  Transmission Date: 20120825
  Serious: Yes (Hospitalization, Other)
  Sender: FDA-Public Use
  Company Number: IN-PFIZER INC-2012078817

PATIENT
  Sex: Male

DRUGS (1)
  1. SUTENT [Suspect]
     Indication: METASTATIC RENAL CELL CARCINOMA
     Dosage: 50 MG, 1X/DAY
     Route: 048
     Dates: start: 20120323

REACTIONS (7)
  - ASTHENIA [None]
  - PYREXIA [None]
  - EPISTAXIS [None]
  - LOWER RESPIRATORY TRACT INFECTION [None]
  - HAEMOPTYSIS [None]
  - COUGH [None]
  - DIARRHOEA [None]
